FAERS Safety Report 4855091-0 (Version None)
Quarter: 2005Q4

REPORT INFORMATION
  Report Type: 
  Country: None (occurrence: None)
  Receive Date: 20051214
  Receipt Date: 20051201
  Transmission Date: 20060501
  Serious: Yes (Hospitalization)
  Sender: FDA-Public Use
  Company Number: 2005163936

PATIENT
  Age: 80 Year
  Sex: Female
  Weight: 68.0396 kg

DRUGS (1)
  1. XALATAN [Suspect]
     Indication: GLAUCOMA
     Dosage: 2 DROP (1 DROP), OPHTHALMIC
     Route: 047

REACTIONS (10)
  - BODY HEIGHT DECREASED [None]
  - CATARACT OPERATION [None]
  - CHALAZION [None]
  - CONJUNCTIVITIS [None]
  - EYE INFECTION [None]
  - EYELID DISORDER [None]
  - MEDICAL DEVICE COMPLICATION [None]
  - OSTEOPOROSIS [None]
  - POSTOPERATIVE INFECTION [None]
  - STAPHYLOCOCCAL INFECTION [None]
